FAERS Safety Report 11746848 (Version 2)
Quarter: 2015Q4

REPORT INFORMATION
  Report Type: Spontaneous
  Country: CH (occurrence: CH)
  Receive Date: 20151117
  Receipt Date: 20151224
  Transmission Date: 20160304
  Serious: Yes (Hospitalization)
  Sender: FDA-Public Use
  Company Number: CH-PFIZER INC-2015386581

PATIENT
  Age: 74 Year
  Sex: Male

DRUGS (12)
  1. CORDARONE [Suspect]
     Active Substance: AMIODARONE HYDROCHLORIDE
     Dosage: 100 MG, 2X/DAY
     Route: 065
  2. METO ZEROK [Concomitant]
     Active Substance: METOPROLOL SUCCINATE
     Indication: CORONARY ARTERY DISEASE
     Dosage: UNK
     Dates: start: 201501
  3. KCL-RETARD ZYMA [Concomitant]
     Dosage: UNK
     Dates: start: 201501
  4. MAGNESIOCARD [Concomitant]
     Active Substance: MAGNESIUM ASPARTATE HYDROCHLORIDE
     Dosage: UNK
     Dates: start: 201501
  5. MARCOUMAR [Concomitant]
     Active Substance: PHENPROCOUMON
     Indication: CORONARY ARTERY DISEASE
     Dosage: UNK
     Dates: start: 201501
  6. ATORVASTATIN [Concomitant]
     Active Substance: ATORVASTATIN
     Indication: CORONARY ARTERY DISEASE
     Dosage: UNK
     Dates: start: 201501
  7. PANTOPRAZOLE [Concomitant]
     Active Substance: PANTOPRAZOLE SODIUM
     Dosage: UNK
     Dates: start: 201501
  8. CLOPIDOGREL [Concomitant]
     Active Substance: CLOPIDOGREL BISULFATE
     Indication: CORONARY ARTERY DISEASE
     Dosage: UNK
     Dates: start: 201501
  9. COVERSUM COMBI [Concomitant]
     Active Substance: INDAPAMIDE
     Indication: CORONARY ARTERY DISEASE
     Dosage: UNK
     Dates: start: 201501
  10. CORDARONE [Suspect]
     Active Substance: AMIODARONE HYDROCHLORIDE
     Indication: VENTRICULAR TACHYCARDIA
     Dosage: 200 MG, 2X/DAY
     Route: 048
     Dates: start: 201402
  11. CORDARONE [Suspect]
     Active Substance: AMIODARONE HYDROCHLORIDE
     Dosage: 200 MG, 2X/DAY
     Route: 065
     Dates: start: 201409, end: 201506
  12. DANCOR [Concomitant]
     Active Substance: NICORANDIL
     Indication: CORONARY ARTERY DISEASE
     Dosage: UNK
     Dates: start: 201501

REACTIONS (10)
  - Tri-iodothyronine free decreased [Unknown]
  - Intention tremor [Recovering/Resolving]
  - Diplopia [Recovered/Resolved]
  - Pulmonary mass [Unknown]
  - Liver scan abnormal [Unknown]
  - Cerebellar ataxia [Recovering/Resolving]
  - Weight decreased [Recovered/Resolved]
  - Drug level increased [Recovered/Resolved]
  - Hepatic enzyme increased [Recovered/Resolved]
  - Computerised tomogram thorax normal [Unknown]

NARRATIVE: CASE EVENT DATE: 201501
